FAERS Safety Report 7986082-9 (Version None)
Quarter: 2011Q4

REPORT INFORMATION
  Report Type: 
  Country: None (occurrence: None)
  Receive Date: 20111216
  Receipt Date: 20110719
  Transmission Date: 20120403
  Serious: No
  Sender: FDA-Public Use
  Company Number: US-BRISTOL-MYERS SQUIBB COMPANY-15845837

PATIENT
  Age: 50 Year
  Sex: Female
  Weight: 91 kg

DRUGS (4)
  1. ABILIFY [Suspect]
     Indication: AFFECTIVE DISORDER
     Dosage: MONOTHERAPY,FOUR WEEKS AGO,DOSE INCREASED TO 10 MG, AND NOW 20MG
  2. ABILIFY [Suspect]
     Indication: SCHIZOPHRENIA
     Dosage: MONOTHERAPY,FOUR WEEKS AGO,DOSE INCREASED TO 10 MG, AND NOW 20MG
  3. BENADRYL [Concomitant]
     Dosage: EVERY NIGHT
  4. ABILIFY [Suspect]
     Indication: BIPOLAR DISORDER
     Dosage: MONOTHERAPY,FOUR WEEKS AGO,DOSE INCREASED TO 10 MG, AND NOW 20MG

REACTIONS (8)
  - RESTLESSNESS [None]
  - INCOHERENT [None]
  - ABNORMAL BEHAVIOUR [None]
  - PSYCHOMOTOR HYPERACTIVITY [None]
  - POOR QUALITY SLEEP [None]
  - SOMNOLENCE [None]
  - TREMOR [None]
  - DRUG INEFFECTIVE [None]
